FAERS Safety Report 23112979 (Version 5)
Quarter: 2025Q2

REPORT INFORMATION
  Report Type: Spontaneous
  Country: FR (occurrence: FR)
  Receive Date: 20231027
  Receipt Date: 20250630
  Transmission Date: 20250717
  Serious: Yes (Death, Hospitalization)
  Sender: ROCHE
  Company Number: None

PATIENT
  Age: 58 Year
  Sex: Male

DRUGS (31)
  1. MYCOPHENOLATE MOFETIL [Suspect]
     Active Substance: MYCOPHENOLATE MOFETIL
     Indication: Allogenic stem cell transplantation
     Dosage: 15 MG/KG, QD
     Route: 065
  2. MYCOPHENOLATE MOFETIL [Suspect]
     Active Substance: MYCOPHENOLATE MOFETIL
     Indication: Prophylaxis against graft versus host disease
     Route: 065
  3. AMIKACIN [Suspect]
     Active Substance: AMIKACIN
     Indication: Pyrexia
     Route: 065
  4. AMIKACIN [Suspect]
     Active Substance: AMIKACIN
     Route: 065
  5. CYCLOPHOSPHAMIDE [Suspect]
     Active Substance: CYCLOPHOSPHAMIDE
     Indication: Allogenic stem cell transplantation
     Route: 065
  6. CYCLOPHOSPHAMIDE [Suspect]
     Active Substance: CYCLOPHOSPHAMIDE
     Route: 065
  7. CEFTAZIDIME [Suspect]
     Active Substance: CEFTAZIDIME
     Indication: Pyrexia
     Route: 065
  8. CEFTAZIDIME [Suspect]
     Active Substance: CEFTAZIDIME
     Route: 065
  9. LAPINE T-LYMPHOCYTE IMMUNE GLOBULIN [Suspect]
     Active Substance: LAPINE T-LYMPHOCYTE IMMUNE GLOBULIN
     Indication: Allogenic stem cell transplantation
     Route: 065
  10. LAPINE T-LYMPHOCYTE IMMUNE GLOBULIN [Suspect]
     Active Substance: LAPINE T-LYMPHOCYTE IMMUNE GLOBULIN
     Route: 065
  11. IMIPENEM [Suspect]
     Active Substance: IMIPENEM
     Indication: Pyrexia
     Route: 065
  12. IMIPENEM [Suspect]
     Active Substance: IMIPENEM
     Route: 065
  13. CIPROFLOXACIN [Suspect]
     Active Substance: CIPROFLOXACIN
     Indication: Proteus test positive
     Route: 065
  14. CIPROFLOXACIN [Suspect]
     Active Substance: CIPROFLOXACIN
     Route: 065
  15. CYCLOSPORINE [Suspect]
     Active Substance: CYCLOSPORINE
     Indication: Prophylaxis against graft versus host disease
     Dosage: 3 MG/KG, QD
     Route: 065
  16. CYCLOSPORINE [Suspect]
     Active Substance: CYCLOSPORINE
     Indication: Stem cell transplant
     Route: 065
  17. PIPERACILLIN SODIUM\TAZOBACTAM SODIUM [Suspect]
     Active Substance: PIPERACILLIN SODIUM\TAZOBACTAM SODIUM
     Indication: Pyrexia
     Route: 065
  18. PIPERACILLIN SODIUM\TAZOBACTAM SODIUM [Suspect]
     Active Substance: PIPERACILLIN SODIUM\TAZOBACTAM SODIUM
     Route: 065
  19. FLUDARABINE [Suspect]
     Active Substance: FLUDARABINE PHOSPHATE
     Indication: Chronic myeloid leukaemia
     Route: 065
  20. CYTARABINE [Suspect]
     Active Substance: CYTARABINE
     Indication: Chronic myeloid leukaemia
     Route: 065
  21. VORICONAZOLE [Suspect]
     Active Substance: VORICONAZOLE
     Indication: Aspergillus infection
     Route: 065
  22. METRONIDAZOLE [Suspect]
     Active Substance: METRONIDAZOLE
     Indication: Product used for unknown indication
     Route: 065
  23. VANCOMYCIN [Suspect]
     Active Substance: VANCOMYCIN
     Indication: Product used for unknown indication
     Route: 065
  24. AMSACRINE [Suspect]
     Active Substance: AMSACRINE
     Indication: Chemotherapy
     Route: 065
  25. AMSACRINE [Suspect]
     Active Substance: AMSACRINE
     Indication: Bone marrow conditioning regimen
  26. AMSACRINE [Suspect]
     Active Substance: AMSACRINE
     Indication: Radiotherapy
  27. AMSACRINE [Suspect]
     Active Substance: AMSACRINE
     Indication: Chronic myeloid leukaemia
  28. Lenogastrim [Concomitant]
     Indication: Bone marrow conditioning regimen
  29. CIPROFLOXACIN [Concomitant]
     Active Substance: CIPROFLOXACIN
  30. CYTARABINE [Concomitant]
     Active Substance: CYTARABINE
  31. FLUDARABINE [Concomitant]
     Active Substance: FLUDARABINE PHOSPHATE

REACTIONS (23)
  - Large intestine infection [Fatal]
  - Clostridium difficile colitis [Fatal]
  - Pyrexia [Fatal]
  - Vomiting [Fatal]
  - Diarrhoea [Fatal]
  - Acute graft versus host disease [Fatal]
  - Rash erythematous [Fatal]
  - Aspergillus infection [Fatal]
  - Hypoxia [Fatal]
  - Rash [Fatal]
  - Hallucination [Fatal]
  - Dyspnoea [Fatal]
  - Aspergillus test positive [Fatal]
  - Ulcer [Fatal]
  - Bronchopulmonary aspergillosis [Fatal]
  - Haemodynamic instability [Fatal]
  - Colitis [Fatal]
  - Proteus test positive [Fatal]
  - Congenital aplasia [Fatal]
  - Rash pustular [Fatal]
  - Condition aggravated [Fatal]
  - Cough [Fatal]
  - Multiple organ dysfunction syndrome [Fatal]
